FAERS Safety Report 10407678 (Version 2)
Quarter: 2015Q3

REPORT INFORMATION
  Report Type: Spontaneous
  Country: US (occurrence: US)
  Receive Date: 20140825
  Receipt Date: 20150806
  Transmission Date: 20151125
  Serious: Yes (Hospitalization, Other)
  Sender: FDA-Public Use
  Company Number: US-ENDO PHARMACEUTICALS INC.-PRED20140039

PATIENT
  Age: 46 Year
  Sex: Male
  Weight: 77.6 kg

DRUGS (10)
  1. PREDNISONE TABLETS [Suspect]
     Active Substance: PREDNISONE
     Indication: ARTHRALGIA
     Dosage: 80MG TAPERING
     Route: 048
  2. PREDNISONE TABLETS [Suspect]
     Active Substance: PREDNISONE
     Indication: DERMATITIS ATOPIC
  3. ALBUTEROL. [Concomitant]
     Active Substance: ALBUTEROL
     Indication: ASTHMA
     Route: 048
     Dates: start: 1980
  4. RELPAX [Concomitant]
     Active Substance: ELETRIPTAN HYDROBROMIDE
     Indication: MIGRAINE
     Dates: start: 2012
  5. SYMBICORT [Concomitant]
     Active Substance: BUDESONIDE\FORMOTEROL FUMARATE DIHYDRATE
     Indication: ASTHMA
     Dosage: 160/4.5
     Route: 048
     Dates: start: 2003
  6. FLONASE [Concomitant]
     Active Substance: FLUTICASONE PROPIONATE
     Indication: RHINITIS ALLERGIC
     Route: 045
     Dates: start: 2011
  7. ALLEGRA [Concomitant]
     Active Substance: FEXOFENADINE HYDROCHLORIDE
     Indication: RHINITIS
     Route: 048
     Dates: start: 201307
  8. AMOXICILLIN. [Concomitant]
     Active Substance: AMOXICILLIN
     Indication: BRONCHITIS
     Route: 048
     Dates: start: 20131126, end: 20131203
  9. OMEPRAZOLE. [Concomitant]
     Active Substance: OMEPRAZOLE
     Indication: GASTROOESOPHAGEAL REFLUX DISEASE
     Route: 048
     Dates: start: 2011
  10. IBUPROFEN TABLETS [Concomitant]
     Active Substance: IBUPROFEN
     Indication: ARTHRALGIA
     Route: 048
     Dates: start: 20131011

REACTIONS (1)
  - Osteonecrosis [Recovered/Resolved]

NARRATIVE: CASE EVENT DATE: 20131224
